FAERS Safety Report 9532784 (Version 2)
Quarter: 2013Q3

REPORT INFORMATION
  Report Type: Spontaneous
  Country: US (occurrence: US)
  Receive Date: 20130918
  Receipt Date: 20130918
  Transmission Date: 20140515
  Serious: Yes (Other)
  Sender: FDA-Public Use
  Company Number: US-NAPPMUNDI-USA-2011-0075372

PATIENT
  Sex: Female

DRUGS (3)
  1. BUTRANS [Suspect]
     Indication: PAIN
     Dosage: 10 MCG, Q1H
     Route: 062
     Dates: start: 20110510, end: 20110614
  2. NORCO [Suspect]
     Indication: PRODUCT USED FOR UNKNOWN INDICATION
     Dosage: 2 DF, DAILY
  3. FLEXERIL                           /00428402/ [Concomitant]
     Indication: MUSCLE SPASMS
     Dosage: 5 MG, TID

REACTIONS (1)
  - Palpitations [Recovered/Resolved]
